FAERS Safety Report 4318736-X (Version None)
Quarter: 2004Q1

REPORT INFORMATION
  Report Type: 
  Country: None (occurrence: None)
  Receive Date: 20040315
  Receipt Date: 20040309
  Transmission Date: 20041129
  Serious: Yes (Death, Life-Threatening, Disabling)
  Sender: FDA-Public Use
  Company Number: 2004-02-1412

PATIENT
  Age: 50 Year
  Sex: Male
  Weight: 82.5547 kg

DRUGS (2)
  1. INTRON A [Suspect]
     Indication: HEPATITIS C
     Dosage: SUBCUTANEOUS
     Route: 058
     Dates: start: 19991130, end: 20000515
  2. REBETOL [Suspect]
     Indication: HEPATITIS C
     Dosage: 1200 MG ORAL
     Route: 048
     Dates: start: 19991130, end: 20000515

REACTIONS (2)
  - AMYOTROPHIC LATERAL SCLEROSIS [None]
  - THERAPY NON-RESPONDER [None]
